FAERS Safety Report 18497972 (Version 2)
Quarter: 2023Q1

REPORT INFORMATION
  Report Type: Report from Study
  Country: DE (occurrence: DE)
  Receive Date: 20201112
  Receipt Date: 20230326
  Transmission Date: 20230418
  Serious: Yes (Hospitalization, Other)
  Sender: FDA-Public Use
  Company Number: DE-002147023-NVSC2020DE295935

PATIENT
  Age: 33 Year
  Sex: Female
  Weight: 82 kg

DRUGS (8)
  1. ERENUMAB [Suspect]
     Active Substance: ERENUMAB
     Indication: Migraine
     Dosage: 140 MILLIGRAM
     Route: 058
     Dates: start: 20200518, end: 20201005
  2. ERENUMAB [Suspect]
     Active Substance: ERENUMAB
     Dosage: UNK
     Route: 058
     Dates: start: 20201102
  3. PREGABALIN [Concomitant]
     Active Substance: PREGABALIN
     Indication: Pruritus
     Dosage: 100 MILLIGRAM
     Route: 065
     Dates: start: 2014
  4. DESLORATADINE [Concomitant]
     Active Substance: DESLORATADINE
     Indication: Pruritus
     Dosage: 10 MILLIGRAM
     Route: 065
     Dates: start: 2009
  5. CHOLECALCIFEROL [Concomitant]
     Active Substance: CHOLECALCIFEROL
     Indication: Vitamin D deficiency
     Dosage: 20000 IE
     Route: 065
     Dates: start: 2009
  6. LEVOTHYROXINE SODIUM [Concomitant]
     Active Substance: LEVOTHYROXINE SODIUM
     Indication: Hypothyroidism
     Dosage: 112 MILLIGRAM
     Route: 065
     Dates: start: 2017
  7. Esomeprazol cf [Concomitant]
     Indication: Hyperchlorhydria
     Dosage: 20 MILLIGRAM
     Route: 065
     Dates: start: 2020
  8. FOSTER [Concomitant]
     Active Substance: BECLOMETHASONE\FORMOTEROL
     Indication: Asthma
     Dosage: 200/6 MICROGRAM
     Route: 065
     Dates: start: 20200226

REACTIONS (1)
  - Tachycardia [Recovered/Resolved]

NARRATIVE: CASE EVENT DATE: 20201025
